FAERS Safety Report 10196380 (Version 5)
Quarter: 2014Q4

REPORT INFORMATION
  Report Type: Report from Study
  Country: US (occurrence: None)
  Receive Date: 20140522
  Receipt Date: 20141128
  Transmission Date: 20150528
  Serious: Yes (Hospitalization)
  Sender: FDA-Public Use
  Company Number: 2339140

PATIENT
  Age: 63 Year
  Sex: Female
  Weight: 70.8 kg

DRUGS (25)
  1. INVESTIGATIONAL DRUG [Suspect]
     Active Substance: INVESTIGATIONAL PRODUCT
     Indication: SARCOMA METASTATIC
     Dosage: 8 MG/KG  MILLIGRAM(S)/KILOGRAM  (CYCLICAL), INTRAVENOUS DRIP
     Route: 041
     Dates: start: 20140220, end: 20140320
  2. LEVOTHYROXINE [Concomitant]
     Active Substance: LEVOTHYROXINE
  3. VACCINIUM MACROCARPON [Concomitant]
  4. INVESTIGATIONAL DRUG [Suspect]
     Active Substance: INVESTIGATIONAL PRODUCT
     Indication: SARCOMA
     Dosage: 8 MG/KG  MILLIGRAM(S)/KILOGRAM  (CYCLICAL), INTRAVENOUS DRIP
     Route: 041
     Dates: start: 20140220, end: 20140320
  5. FAMOTIDINE. [Concomitant]
     Active Substance: FAMOTIDINE
  6. RANITIDINE [Concomitant]
     Active Substance: RANITIDINE\RANITIDINE HYDROCHLORIDE
  7. ENOXAPARIN [Concomitant]
     Active Substance: ENOXAPARIN
  8. DOCETAXEL. [Suspect]
     Active Substance: DOCETAXEL
     Indication: SARCOMA METASTATIC
     Dosage: 127 MG MILLIGRAM(S), CYCLICAL, INTRAVENOUS DRIP
     Route: 041
     Dates: start: 20140227
  9. ACETAMINOPHEN. [Concomitant]
     Active Substance: ACETAMINOPHEN
  10. CITALOPRAM [Concomitant]
     Active Substance: CITALOPRAM HYDROBROMIDE
  11. MULTIVITAMINS [Concomitant]
     Active Substance: VITAMINS
  12. BISACODYL. [Concomitant]
     Active Substance: BISACODYL
  13. ALTEPLASE [Concomitant]
     Active Substance: ALTEPLASE
  14. GEMCITABINE [Suspect]
     Active Substance: GEMCITABINE\GEMCITABINE HYDROCHLORIDE
     Indication: SARCOMA METASTATIC
     Dosage: 900 MG MILLIGRAM(S) (CYCLICAL), INTRAVENOUS DRIP
     Route: 041
     Dates: start: 20140220
  15. BENZONATATE. [Concomitant]
     Active Substance: BENZONATATE
  16. DEXAMETHASONE. [Concomitant]
     Active Substance: DEXAMETHASONE
  17. ONDANSETRON [Concomitant]
     Active Substance: ONDANSETRON
  18. CALCIUM [Concomitant]
     Active Substance: CALCIUM
  19. DOCUSATE SODIUM. [Concomitant]
     Active Substance: DOCUSATE SODIUM
  20. OMEPRAZOLE. [Concomitant]
     Active Substance: OMEPRAZOLE
  21. PROCHLORPERAZINE MALEATE. [Concomitant]
     Active Substance: PROCHLORPERAZINE MALEATE
  22. DIPHENHYDRAMINE [Concomitant]
     Active Substance: DIPHENHYDRAMINE
  23. LIDOCAINE W/ PRILOCAINE [Concomitant]
  24. NYSTATIN. [Concomitant]
     Active Substance: NYSTATIN
  25. PEGFILGRASTIM [Concomitant]
     Active Substance: PEGFILGRASTIM

REACTIONS (32)
  - Colitis [None]
  - Red blood cell count decreased [None]
  - Syncope [None]
  - Loss of consciousness [None]
  - Presyncope [None]
  - Atelectasis [None]
  - Food intolerance [None]
  - Flatulence [None]
  - Drug intolerance [None]
  - Viral infection [None]
  - Urinary tract infection [None]
  - Rhinitis [None]
  - Vomiting [None]
  - Haematocrit decreased [None]
  - Platelet count abnormal [None]
  - Blood sodium decreased [None]
  - Atypical pneumonia [None]
  - Lung infection [None]
  - Fall [None]
  - Haematoma [None]
  - Skin abrasion [None]
  - Nausea [None]
  - Upper respiratory tract infection [None]
  - Neutropenia [None]
  - White blood cell count decreased [None]
  - Alveolitis allergic [None]
  - Haemoglobin decreased [None]
  - Weight increased [None]
  - Insomnia [None]
  - Hyperhidrosis [None]
  - Fatigue [None]
  - Pyrexia [None]

NARRATIVE: CASE EVENT DATE: 20140305
